FAERS Safety Report 4351663-0 (Version None)
Quarter: 2004Q2

REPORT INFORMATION
  Report Type: 
  Country: None (occurrence: None)
  Receive Date: 20040429
  Receipt Date: 20040305
  Transmission Date: 20050107
  Serious: No
  Sender: FDA-Public Use
  Company Number: 2004-114264-NL

PATIENT
  Age: 47 Year
  Sex: Female
  Weight: 64 kg

DRUGS (4)
  1. NUVARING [Suspect]
     Indication: MENSTRUATION IRREGULAR
     Dosage: DF DAILY
     Dates: start: 20040222
  2. NUVARING [Suspect]
     Indication: SLEEP DISORDER
     Dosage: DF DAILY
     Dates: start: 20040222
  3. LEVOTHROID [Concomitant]
  4. ACIDOPHILUS ^ZYMA^ [Concomitant]

REACTIONS (6)
  - ABDOMINAL DISTENSION [None]
  - BREAST SWELLING [None]
  - BREAST TENDERNESS [None]
  - FACE OEDEMA [None]
  - OEDEMA PERIPHERAL [None]
  - WEIGHT INCREASED [None]
